FAERS Safety Report 8449640-3 (Version None)
Quarter: 2012Q2

REPORT INFORMATION
  Report Type: 
  Country: None (occurrence: None)
  Receive Date: 20120620
  Receipt Date: 20120614
  Transmission Date: 20120825
  Serious: Yes (Hospitalization)
  Sender: FDA-Public Use
  Company Number: US-BIOGENIDEC-2012BI021413

PATIENT
  Age: 35 Year
  Sex: Male

DRUGS (3)
  1. AVONEX [Suspect]
     Indication: MULTIPLE SCLEROSIS
     Route: 030
     Dates: start: 20070201, end: 20070101
  2. AVONEX [Suspect]
     Route: 030
     Dates: start: 20071201
  3. AVONEX [Suspect]
     Route: 030
     Dates: start: 20120609

REACTIONS (1)
  - ATRIAL FIBRILLATION [None]
